FAERS Safety Report 4846972-2 (Version None)
Quarter: 2005Q4

REPORT INFORMATION
  Report Type: 
  Country: None (occurrence: None)
  Receive Date: 20051201
  Receipt Date: 20051114
  Transmission Date: 20060501
  Serious: Yes (Hospitalization)
  Sender: FDA-Public Use
  Company Number: 2005BI020733

PATIENT
  Age: 56 Year
  Sex: Female
  Weight: 96.6162 kg

DRUGS (3)
  1. AVONEX [Suspect]
     Indication: MULTIPLE SCLEROSIS
     Dosage: 30 UG;QW;IM
     Dates: start: 20040609
  2. LEVOTHROID [Concomitant]
  3. BLADDER MEDICATION [Concomitant]

REACTIONS (4)
  - ANOREXIA [None]
  - DIABETES MELLITUS [None]
  - DRY MOUTH [None]
  - PAIN IN EXTREMITY [None]
